FAERS Safety Report 9179351 (Version 2)
Quarter: 2014Q1

REPORT INFORMATION
  Report Type: Spontaneous
  Country: US (occurrence: US)
  Receive Date: 20130321
  Receipt Date: 20140123
  Transmission Date: 20141002
  Serious: Yes (Other)
  Sender: FDA-Public Use
  Company Number: US-BAYER-2013-034467

PATIENT
  Age: 41 Year
  Sex: Female

DRUGS (6)
  1. YAZ [Suspect]
  2. YASMIN [Suspect]
  3. OCELLA [Suspect]
  4. ALPRAZOLAM [Concomitant]
     Dosage: 0.25 MG, UNK
     Dates: start: 20060224
  5. METOCLOPRAMIDE [Concomitant]
     Dosage: 10 MG, UNK
     Dates: start: 20060423
  6. IBUPROFEN [Concomitant]
     Dosage: 200 MG, ON OCCASION
     Dates: start: 20060425

REACTIONS (4)
  - Cholecystitis acute [None]
  - Cholecystectomy [None]
  - Injury [None]
  - Emotional distress [None]
